FAERS Safety Report 5058190-6 (Version None)
Quarter: 2006Q2

REPORT INFORMATION
  Report Type: 
  Country: None (occurrence: None)
  Receive Date: 20060622
  Receipt Date: 20051128
  Transmission Date: 20061013
  Serious: Yes (Other)
  Sender: FDA-Public Use
  Company Number: US-JNJFOC-20051200303

PATIENT
  Age: 43 Year
  Sex: Female
  Weight: 62.5964 kg

DRUGS (8)
  1. FENTANYL TRANSDERMAL SYSTEM [Suspect]
     Indication: PAIN
     Dosage: SEE IMAGE
     Route: 062
     Dates: start: 20051101, end: 20051101
  2. FENTANYL TRANSDERMAL SYSTEM [Suspect]
     Indication: PAIN
     Dosage: SEE IMAGE
     Route: 062
     Dates: start: 20051101
  3. DITROPAN [Concomitant]
  4. BACTRIM [Concomitant]
  5. XANAX [Concomitant]
  6. AMBIEN [Concomitant]
  7. NEXIUM [Concomitant]
  8. TRAMADOL HCL [Concomitant]

REACTIONS (1)
  - HALLUCINATION, VISUAL [None]
